FAERS Safety Report 4579868-4 (Version None)
Quarter: 2005Q1

REPORT INFORMATION
  Report Type: 
  Country: None (occurrence: None)
  Receive Date: 20050214
  Receipt Date: 20041115
  Transmission Date: 20050727
  Serious: Yes (Hospitalization)
  Sender: FDA-Public Use
  Company Number: 200413498JP

PATIENT
  Age: 70 Year
  Sex: Female
  Weight: 60 kg

DRUGS (2)
  1. KETEK [Suspect]
     Indication: BRONCHITIS
     Route: 048
     Dates: start: 20040910, end: 20040911
  2. PA [Concomitant]
     Indication: BRONCHITIS
     Dosage: DOSE: 6 TABLETS
     Dates: start: 20040910, end: 20040911

REACTIONS (2)
  - DERMATITIS ALLERGIC [None]
  - URTICARIA [None]
